FAERS Safety Report 9696442 (Version 1)
Quarter: 2013Q4

REPORT INFORMATION
  Report Type: Spontaneous
  Country: US (occurrence: US)
  Receive Date: 20131119
  Receipt Date: 20131119
  Transmission Date: 20140711
  Serious: Yes (Other)
  Sender: FDA-Public Use
  Company Number: US-PFIZER INC-2013330589

PATIENT
  Age: 48 Year
  Sex: Female
  Weight: 100 kg

DRUGS (3)
  1. LYRICA [Suspect]
     Indication: FIBROMYALGIA
     Dosage: UNK, 3X/DAY
     Dates: end: 2013
  2. XANAX [Concomitant]
     Indication: ANXIETY
     Dosage: 01 MG, 3X/DAY
  3. BUPROPION [Concomitant]
     Indication: DEPRESSION
     Dosage: UNK, 1X/DAY

REACTIONS (1)
  - Nervous system disorder [Unknown]
